FAERS Safety Report 7828801-8 (Version None)
Quarter: 2011Q4

REPORT INFORMATION
  Report Type: 
  Country: None (occurrence: None)
  Receive Date: 20111019
  Receipt Date: 20111007
  Transmission Date: 20120403
  Serious: Yes (Other)
  Sender: FDA-Public Use
  Company Number: IE-004547

PATIENT
  Sex: Male

DRUGS (8)
  1. FUROSEMIDE [Concomitant]
  2. XATRAL XL [Concomitant]
  3. FLORINEF [Concomitant]
  4. ZOMETA [Concomitant]
  5. CALCICHEW-D3 FORTE [Concomitant]
  6. FIRMAGON [Suspect]
     Indication: PROSTATE CANCER
     Dosage: 240MG 1X SUBCUTANEOUS *80 MG/1XMONTH SUBCUTANEOUS)
     Route: 058
     Dates: start: 20100701, end: 20110101
  7. FIRMAGON [Suspect]
     Indication: PROSTATE CANCER
     Dosage: 240MG 1X SUBCUTANEOUS *80 MG/1XMONTH SUBCUTANEOUS)
     Route: 058
     Dates: start: 20100101, end: 20100101
  8. ASPIRIN [Concomitant]

REACTIONS (10)
  - HAEMOGLOBIN DECREASED [None]
  - FATIGUE [None]
  - DEPRESSION [None]
  - NOCTURIA [None]
  - HAEMATOCRIT DECREASED [None]
  - DYSPNOEA EXERTIONAL [None]
  - ASTHENIA [None]
  - CARDIAC DISORDER [None]
  - CONFUSIONAL STATE [None]
  - QUALITY OF LIFE DECREASED [None]
